FAERS Safety Report 18462529 (Version 5)
Quarter: 2021Q1

REPORT INFORMATION
  Report Type: Report from Study
  Country: FR (occurrence: FR)
  Receive Date: 20201104
  Receipt Date: 20210121
  Transmission Date: 20210419
  Serious: Yes (Other)
  Sender: FDA-Public Use
  Company Number: FR-OTSUKA-2020_026879

PATIENT
  Age: 44 Year
  Sex: Male
  Weight: 86 kg

DRUGS (9)
  1. TOLVAPTAN [Suspect]
     Active Substance: TOLVAPTAN
     Dosage: 30 MG, UNK
     Route: 048
     Dates: start: 20171211
  2. TOLVAPTAN [Suspect]
     Active Substance: TOLVAPTAN
     Dosage: 15 MG, UNK
     Route: 048
     Dates: start: 20170912
  3. TOLVAPTAN [Suspect]
     Active Substance: TOLVAPTAN
     Dosage: 60 MG, UNK
     Route: 048
     Dates: start: 20171113
  4. TOLVAPTAN [Suspect]
     Active Substance: TOLVAPTAN
     Dosage: 30 MG, UNK
     Route: 048
     Dates: start: 20171113
  5. TOLVAPTAN [Suspect]
     Active Substance: TOLVAPTAN
     Indication: CONGENITAL CYSTIC KIDNEY DISEASE
     Dosage: 90 MG, UNK
     Route: 048
     Dates: start: 20171211
  6. TEMERIT [Concomitant]
     Active Substance: NEBIVOLOL
     Indication: PRODUCT USED FOR UNKNOWN INDICATION
     Dosage: 5 MG, QD
     Route: 048
     Dates: start: 20170607, end: 20180711
  7. TEMERIT [Concomitant]
     Active Substance: NEBIVOLOL
     Dosage: 5 MG, QD
     Route: 048
     Dates: start: 20181107
  8. COVERAM [Concomitant]
     Active Substance: AMLODIPINE\PERINDOPRIL
     Indication: PRODUCT USED FOR UNKNOWN INDICATION
     Dosage: 10 MG, QD
     Route: 048
     Dates: start: 20170314
  9. TOLVAPTAN [Suspect]
     Active Substance: TOLVAPTAN
     Dosage: 45 MG, UNK
     Route: 048
     Dates: start: 20170912

REACTIONS (1)
  - Acute kidney injury [Recovered/Resolved]

NARRATIVE: CASE EVENT DATE: 20171211
